FAERS Safety Report 7579945-X (Version None)
Quarter: 2011Q2

REPORT INFORMATION
  Report Type: 
  Country: None (occurrence: None)
  Receive Date: 20110527
  Receipt Date: 20110127
  Transmission Date: 20111010
  Serious: Yes (Hospitalization)
  Sender: FDA-Public Use
  Company Number: US200904007313

PATIENT
  Age: 44 Year
  Sex: Male
  Weight: 147.4 kg

DRUGS (9)
  1. BYETTA [Suspect]
     Dosage: 10 UG, 2/D, SUBCUTANEOUS
     Route: 058
     Dates: start: 20051201, end: 20070516
  2. DILAUDID [Concomitant]
  3. EXENATIDE 10MCG PEN, DISPOSABLE DEVICE (EXENATIDE PEN (10MCG)) [Concomitant]
  4. LOVASTATIN [Concomitant]
  5. GLIPIZIDE [Concomitant]
  6. FISH OIL (FISH OIL) [Concomitant]
  7. TOPROL-XL [Concomitant]
  8. METFORMIN HCL [Concomitant]
  9. LEXAPRO [Concomitant]

REACTIONS (5)
  - ANXIETY [None]
  - PANCREATITIS ACUTE [None]
  - HEART RATE DECREASED [None]
  - BLOOD GLUCOSE INCREASED [None]
  - ILL-DEFINED DISORDER [None]
